FAERS Safety Report 5023967-X (Version None)
Quarter: 2006Q2

REPORT INFORMATION
  Report Type: 
  Country: None (occurrence: None)
  Receive Date: 20060426
  Receipt Date: 20060209
  Transmission Date: 20061013
  Serious: Yes (Other)
  Sender: FDA-Public Use
  Company Number: 2006021529

PATIENT
  Age: 62 Year
  Sex: Female
  Weight: 79.3795 kg

DRUGS (5)
  1. LYRICA [Suspect]
     Indication: PERIPHERAL SENSORY NEUROPATHY
     Dosage: 100 MG (50 MG, 2 IN 1 D),
     Dates: start: 20060101
  2. SYNTHROID [Concomitant]
  3. VITAMIN D [Concomitant]
  4. TUMS (CALCIUM CARBONATE) [Concomitant]
  5. KLONOPIN [Concomitant]

REACTIONS (2)
  - ALOPECIA [None]
  - DISTURBANCE IN ATTENTION [None]
